FAERS Safety Report 25537294 (Version 1)
Quarter: 2025Q3

REPORT INFORMATION
  Report Type: Spontaneous
  Country: EU (occurrence: EU)
  Receive Date: 20250710
  Receipt Date: 20250710
  Transmission Date: 20251021
  Serious: Yes (Hospitalization, Other)
  Sender: NOVO NORDISK
  Company Number: EU-NOVOPROD-1474031

PATIENT
  Age: 56 Year
  Sex: Male

DRUGS (7)
  1. NOVOSEVEN [Suspect]
     Active Substance: COAGULATION FACTOR VIIA RECOMBINANT HUMAN
     Indication: Haemostasis
  2. TRANEXAMIC ACID [Concomitant]
     Active Substance: TRANEXAMIC ACID
  3. FERRIC CARBOXYMALTOSE [Concomitant]
     Active Substance: FERRIC CARBOXYMALTOSE
  4. OCTREOTIDE [Concomitant]
     Active Substance: OCTREOTIDE
  5. BEVACIZUMAB [Concomitant]
     Active Substance: BEVACIZUMAB
  6. EMICIZUMAB [Concomitant]
     Active Substance: EMICIZUMAB
     Dosage: 3 MG/KG, QW
  7. HUMAN RED BLOOD CELL [Concomitant]
     Active Substance: HUMAN RED BLOOD CELL

REACTIONS (2)
  - Rectal haemorrhage [Recovered/Resolved]
  - Condition aggravated [Recovered/Resolved]
